FAERS Safety Report 11529692 (Version 1)
Quarter: 2015Q3

REPORT INFORMATION
  Report Type: Other
  Country: GB (occurrence: GB)
  Receive Date: 20150921
  Receipt Date: 20150921
  Transmission Date: 20151125
  Serious: Yes (Death, Hospitalization)
  Sender: FDA-Public Use
  Company Number: GB-MYLANLABS-2015M1030545

PATIENT

DRUGS (4)
  1. FLUOXETINE [Suspect]
     Active Substance: FLUOXETINE\FLUOXETINE HYDROCHLORIDE
     Indication: DEPRESSION
     Dosage: UNK
  2. TRAMADOL. [Suspect]
     Active Substance: TRAMADOL
     Indication: PAIN
     Dosage: UNK
  3. AMITRIPTYLINE [Suspect]
     Active Substance: AMITRIPTYLINE
     Indication: PAIN
     Dosage: UNK
  4. PARACETAMOL [Suspect]
     Active Substance: ACETAMINOPHEN
     Dosage: UNK

REACTIONS (3)
  - Intentional overdose [Fatal]
  - Contraindicated drug administered [Unknown]
  - Drug interaction [Unknown]

NARRATIVE: CASE EVENT DATE: 20140830
